FAERS Safety Report 4283115-0 (Version None)
Quarter: 2004Q1

REPORT INFORMATION
  Report Type: 
  Country: None (occurrence: None)
  Receive Date: 20040129
  Receipt Date: 20040114
  Transmission Date: 20041129
  Serious: Yes (Death, Hospitalization)
  Sender: FDA-Public Use
  Company Number: USA-2003-0010449

PATIENT
  Age: 31 Year
  Sex: Female
  Weight: 57 kg

DRUGS (6)
  1. OXYCONTIN [Suspect]
     Indication: PAIN
     Dosage: 40 MG,  SEE TEXT, ORAL
     Route: 048
  2. KLONOPIN [Suspect]
     Indication: PANIC DISORDER
     Dosage: 2 MG, TID, ORAL
     Route: 048
  3. CELEXA [Suspect]
     Indication: DEPRESSION
     Dosage: 20 MG, DAILY, ORAL
     Route: 048
  4. SALICYLATES (SALICYLATES) [Suspect]
  5. VITAMIN C (ASCORBIC ACID) [Concomitant]
  6. EFFEXOR [Concomitant]

REACTIONS (10)
  - ACCIDENTAL OVERDOSE [None]
  - DEPRESSED LEVEL OF CONSCIOUSNESS [None]
  - DIZZINESS [None]
  - HEPATITIS GRANULOMATOUS [None]
  - HYPERGLYCAEMIA [None]
  - MENTAL IMPAIRMENT [None]
  - MULTIPLE DRUG OVERDOSE [None]
  - PULMONARY OEDEMA [None]
  - REFUSAL OF TREATMENT BY PATIENT [None]
  - THIRST [None]
